FAERS Safety Report 7972535-6 (Version None)
Quarter: 2011Q4

REPORT INFORMATION
  Report Type: 
  Country: None (occurrence: None)
  Receive Date: 20111213
  Receipt Date: 20111201
  Transmission Date: 20120403
  Serious: Yes (Other)
  Sender: FDA-Public Use
  Company Number: AR-AMGEN-ARGSP2011009350

PATIENT
  Age: 53 Year
  Sex: Female
  Weight: 76 kg

DRUGS (6)
  1. RANITIDINE [Concomitant]
     Dosage: 300 MG, 1X/DAY
     Route: 048
  2. FOLIC ACID [Suspect]
     Dosage: UNK
  3. LEFLUNOMIDE [Concomitant]
     Dosage: 20 MG, 1X/DAY
     Route: 048
  4. BACTRIM [Suspect]
     Dosage: UNK
  5. NAPROXEN [Concomitant]
     Dosage: 750 MG, 1X/DAY
     Route: 048
  6. ENBREL [Suspect]
     Indication: RHEUMATOID ARTHRITIS
     Dosage: 25 MG, 2X/WEEK
     Route: 058
     Dates: start: 20050914, end: 20110901

REACTIONS (8)
  - HAEMORRHOIDS [None]
  - BLOOD URINE PRESENT [None]
  - RHEUMATOID LUNG [None]
  - RHEUMATOID NODULE [None]
  - THROAT IRRITATION [None]
  - BLISTER [None]
  - DIARRHOEA [None]
  - NODULE [None]
